FAERS Safety Report 9669152 (Version 1)
Quarter: 2013Q4

REPORT INFORMATION
  Report Type: Spontaneous
  Country: US (occurrence: US)
  Receive Date: 20131105
  Receipt Date: 20131105
  Transmission Date: 20140711
  Serious: Yes (Other)
  Sender: FDA-Public Use
  Company Number: US-SA-2013SA111924

PATIENT
  Age: 76 Year
  Sex: Female

DRUGS (3)
  1. ALLEGRA [Suspect]
     Route: 048
  2. VITAMINS NOS [Concomitant]
     Indication: CATARACT OPERATION
     Route: 065
  3. LUTEIN [Concomitant]

REACTIONS (7)
  - Cataract [Unknown]
  - Adverse event [Unknown]
  - Renal disorder [Unknown]
  - Osteoporosis [Unknown]
  - Memory impairment [Unknown]
  - Escherichia infection [Unknown]
  - Sinus operation [Unknown]
